FAERS Safety Report 24293826 (Version 1)
Quarter: 2024Q3

REPORT INFORMATION
  Report Type: Spontaneous
  Country: US (occurrence: None)
  Receive Date: 20240906
  Receipt Date: 20240906
  Transmission Date: 20241017
  Serious: No
  Sender: DOMPE FARMACEUTICI
  Company Number: US-FARMAPROD-202308-202403-0720

PATIENT
  Age: 75 Year
  Sex: Female

DRUGS (14)
  1. OXERVATE [Suspect]
     Active Substance: CENEGERMIN-BKBJ
     Indication: Neurotrophic keratopathy
     Route: 047
     Dates: start: 20240206
  2. CALCIUM [Concomitant]
     Active Substance: CALCIUM
     Dosage: 500(1250)
  3. REFRESH TEARS [Concomitant]
     Active Substance: CARBOXYMETHYLCELLULOSE SODIUM
  4. MAGNESIUM [Concomitant]
     Active Substance: MAGNESIUM
  5. ZINC-220 [Concomitant]
     Dosage: 50(220)MG
  6. VITAMIN B12 [Concomitant]
     Active Substance: CYANOCOBALAMIN
  7. VITAMIN D2 [Concomitant]
     Active Substance: ERGOCALCIFEROL
  8. VITAMIN C [Concomitant]
     Active Substance: ASCORBIC ACID
  9. VITAMINS [Concomitant]
     Active Substance: VITAMINS
  10. CLARITIN [Concomitant]
     Active Substance: LORATADINE
  11. OMEPRAZOLE [Concomitant]
     Active Substance: OMEPRAZOLE
  12. SIMVASTATIN [Concomitant]
     Active Substance: SIMVASTATIN
  13. MELOXICAM [Concomitant]
     Active Substance: MELOXICAM
  14. HYDROCHLOROTHIAZIDE\LOSARTAN [Concomitant]
     Active Substance: HYDROCHLOROTHIAZIDE\LOSARTAN

REACTIONS (2)
  - Wrong technique in product usage process [Unknown]
  - Product administration error [Unknown]

NARRATIVE: CASE EVENT DATE: 20240229
